FAERS Safety Report 4279481-2 (Version None)
Quarter: 2004Q1

REPORT INFORMATION
  Report Type: 
  Country: None (occurrence: None)
  Receive Date: 20040127
  Receipt Date: 20040112
  Transmission Date: 20041129
  Serious: Yes (Other)
  Sender: FDA-Public Use
  Company Number: FR-GLAXOSMITHKLINE-B0320042A

PATIENT

DRUGS (1)
  1. DEROXAT [Suspect]
     Dosage: 20MG PER DAY

REACTIONS (4)
  - DRUG EXPOSURE DURING PREGNANCY [None]
  - HYPOTONIA [None]
  - NEONATAL DISORDER [None]
  - TREMOR [None]
